FAERS Safety Report 12227844 (Version 2)
Quarter: 2016Q3

REPORT INFORMATION
  Report Type: Spontaneous
  Country: JP (occurrence: JP)
  Receive Date: 20160401
  Receipt Date: 20160909
  Transmission Date: 20161109
  Serious: Yes (Hospitalization, Other)
  Sender: FDA-Public Use
  Company Number: JP-TAKEDA-2016TJP006040

PATIENT
  Age: 79 Year
  Sex: Female
  Weight: 43.6 kg

DRUGS (2)
  1. LEVOFLOXACIN. [Suspect]
     Active Substance: LEVOFLOXACIN
     Indication: URINARY TRACT INFECTION
     Dosage: 250 MG, QD
     Route: 048
     Dates: start: 20160310, end: 20160316
  2. TAKELDA COMBINATION TABLETS [Suspect]
     Active Substance: ASPIRIN\LANSOPRAZOLE
     Indication: NEPHROTIC SYNDROME
     Dosage: 1 DF, QD
     Route: 048
     Dates: start: 20160109, end: 20160318

REACTIONS (3)
  - Urinary tract infection [Unknown]
  - Interstitial lung disease [Not Recovered/Not Resolved]
  - Off label use [Unknown]

NARRATIVE: CASE EVENT DATE: 20160316
